FAERS Safety Report 4880246-9 (Version None)
Quarter: 2006Q1

REPORT INFORMATION
  Report Type: 
  Country: None (occurrence: None)
  Receive Date: 20060111
  Receipt Date: 20060111
  Transmission Date: 20060701
  Serious: Yes (Hospitalization)
  Sender: FDA-Public Use
  Company Number: None

PATIENT
  Age: 72 Year
  Sex: Male
  Weight: 79.8 kg

DRUGS (1)
  1. LINEZOLID [Suspect]
     Indication: ABSCESS
     Dosage: 1200MG,  600MGQ12, INTRAVEN
     Route: 042
     Dates: start: 20051206, end: 20051220

REACTIONS (1)
  - THROMBOCYTOPENIA [None]
